FAERS Safety Report 16481984 (Version 1)
Quarter: 2019Q2

REPORT INFORMATION
  Report Type: Spontaneous
  Country: SK (occurrence: SK)
  Receive Date: 20190627
  Receipt Date: 20190627
  Transmission Date: 20190711
  Serious: Yes (Hospitalization, Other)
  Sender: FDA-Public Use
  Company Number: SK-SA-2019SA167641

PATIENT
  Age: 56 Year
  Sex: Male

DRUGS (3)
  1. AUBAGIO [Suspect]
     Active Substance: TERIFLUNOMIDE
     Indication: MULTIPLE SCLEROSIS
     Dosage: UNK
     Route: 048
     Dates: start: 20161116, end: 20180524
  2. NOLIPREL [INDAPAMIDE;PERINDOPRIL ARGININE] [Concomitant]
     Indication: HYPERTENSION
  3. SIOFOR [Concomitant]
     Active Substance: METFORMIN HYDROCHLORIDE
     Indication: DIABETES MELLITUS

REACTIONS (7)
  - Eye disorder [Unknown]
  - Visual impairment [Recovering/Resolving]
  - Condition aggravated [Unknown]
  - Gait disturbance [Recovering/Resolving]
  - Multiple sclerosis relapse [Recovering/Resolving]
  - Infection [Unknown]
  - Paraparesis [Unknown]

NARRATIVE: CASE EVENT DATE: 20180524
